FAERS Safety Report 7941863-2 (Version None)
Quarter: 2011Q4

REPORT INFORMATION
  Report Type: 
  Country: None (occurrence: None)
  Receive Date: 20111128
  Receipt Date: 20111118
  Transmission Date: 20120403
  Serious: Yes (Hospitalization, Other)
  Sender: FDA-Public Use
  Company Number: US-BAYER-201040202NA

PATIENT
  Age: 59 Year
  Sex: Male
  Weight: 111.5 kg

DRUGS (48)
  1. TRASYLOL [Suspect]
     Indication: CORONARY ARTERY BYPASS
     Dosage: TEST DOSE: 100CC PUMP PRIME PERFUSIONIST
     Route: 042
     Dates: start: 20050507
  2. VERSED [Concomitant]
     Dosage: 2MG/2ML, 1MG X2
     Route: 042
     Dates: start: 20050506
  3. VERSED [Concomitant]
     Dosage: UNK
     Route: 042
     Dates: start: 20050511
  4. CEFAZOLIN [Concomitant]
     Dosage: 2 G, UNK
     Route: 042
     Dates: start: 20050511
  5. COUMADIN [Concomitant]
  6. FRESH FROZEN PLASMA [Concomitant]
     Dosage: 3 U, UNK
     Route: 042
     Dates: start: 20050511
  7. ACETYLSALICYLIC ACID SRT [Concomitant]
     Dosage: 325 MG EVERY 24 HOURS
     Route: 048
     Dates: start: 20050405
  8. RESTORIL [Concomitant]
     Dosage: 15 MG, HS AS NEEDED
     Route: 048
     Dates: start: 20050503
  9. ZOCOR [Concomitant]
     Dosage: 20 MG, QD
     Route: 048
  10. PLATELETS [Concomitant]
     Dosage: 2 U, UNK
     Route: 042
     Dates: start: 20050511
  11. CRYOPRECIPITATES [Concomitant]
     Dosage: 1 U, UNK
     Route: 042
     Dates: start: 20050511
  12. DIOVAN [Concomitant]
     Indication: CARDIAC FAILURE CONGESTIVE
     Dosage: 80 MG EVERY 24 HOURS AS NEEDED
     Route: 048
     Dates: start: 20041109
  13. VISIPAQUE [Concomitant]
     Indication: CATHETERISATION CARDIAC
     Dosage: 166 ML, UNK
     Dates: start: 20050506
  14. AMIODARONE HCL [Concomitant]
     Dosage: 200 MG, QD
     Route: 048
  15. INSULIN [Concomitant]
  16. BUTALBITAL [Concomitant]
     Indication: HEADACHE
     Dosage: AS NEEDED
     Route: 048
     Dates: start: 20041109
  17. TORSEMIDE [Concomitant]
     Dosage: THREE TIMES DAILY
     Route: 048
     Dates: start: 20050405
  18. ACETAMINOPHEN [Concomitant]
     Dosage: 650 MG EVERY 4 HOURS AS NEEDED
     Route: 048
     Dates: start: 20050503
  19. DELTASONE [Concomitant]
     Dosage: 40 MG EVERY 6 HOURS
     Route: 048
     Dates: start: 20050505, end: 20050506
  20. HEPARIN [Concomitant]
     Dosage: 2 UNITS/500ML, 1000ML
     Route: 042
     Dates: start: 20050506
  21. LOVENOX [Concomitant]
     Dosage: 100 MG EVERY 12 HOURS
     Route: 058
     Dates: start: 20050508
  22. SOLU-MEDROL [Concomitant]
     Dosage: 125 MG, UNK
     Route: 042
     Dates: start: 20050511
  23. FENTANYL-100 [Concomitant]
     Dosage: UNK
     Route: 042
     Dates: start: 20050511, end: 20050511
  24. AVANDIA [Concomitant]
     Indication: DIABETES MELLITUS
     Dosage: 4 MG EVERY 24 HOURS
     Route: 048
     Dates: start: 20041109
  25. LOVASTATIN [Concomitant]
     Dosage: 40 MG, HS
     Route: 048
  26. TRICOR [Concomitant]
     Dosage: 160 MG, QD
     Route: 048
     Dates: start: 20041109
  27. PLAVIX [Concomitant]
     Dosage: 75 MG, UNK
     Route: 048
     Dates: start: 20050506, end: 20050508
  28. VANCOMYCIN [Concomitant]
     Dosage: 1250 MG, UNK
     Route: 042
     Dates: start: 20050511
  29. ZOCOR [Concomitant]
     Dosage: UNK
     Dates: start: 20050511
  30. RED BLOOD CELLS [Concomitant]
  31. POTASSIUM CHLORIDE [Concomitant]
     Dosage: 50 MG, UNK
     Route: 042
     Dates: start: 20050511
  32. VANCOMYCIN [Concomitant]
     Dosage: 1 G, UNK
     Route: 042
     Dates: start: 20050506, end: 20050506
  33. PROTAMINE SULFATE [Concomitant]
     Dosage: 50 MG, UNK
     Route: 042
     Dates: start: 20050511
  34. MILRINONE [Concomitant]
     Dosage: 5 MG, UNK
     Route: 042
     Dates: start: 20050511
  35. CALCIUM CHLORIDE [Concomitant]
     Dosage: 10 M
     Route: 042
     Dates: start: 20050511
  36. LASIX [Concomitant]
     Indication: CARDIAC FAILURE CONGESTIVE
     Dosage: 20-100MG EVERY 24 HOURS
     Route: 042
     Dates: start: 20041109, end: 20050505
  37. CORDARONE [Concomitant]
     Dosage: 200 MG EVERY 24 HOURS TO TWICE DAILY
     Route: 048
     Dates: start: 20041109
  38. ENALAPRIL MALEATE [Concomitant]
     Dosage: 5 MG, BID
     Route: 048
     Dates: start: 20041109
  39. ATENOLOL [Concomitant]
     Dosage: 25 MG, QD
     Route: 048
     Dates: start: 20041109
  40. PROPOFOL [Concomitant]
     Dosage: 100-200MG
     Route: 042
     Dates: start: 20050511
  41. TRASYLOL [Suspect]
     Indication: COX-MAZE PROCEDURE
  42. POTASSIUM CHLORIDE [Concomitant]
     Dosage: 20 MEQ, QD
     Route: 048
     Dates: start: 20041109, end: 20050114
  43. NEXIUM [Concomitant]
     Dosage: 40 MG, BID
     Route: 048
     Dates: start: 20041109
  44. MORPHINE [Concomitant]
     Indication: BACK PAIN
     Dosage: 1MG/ML 1-4MG EVERY 4 HOURS AS NEEDED
     Route: 042
     Dates: start: 20050503
  45. PROTONIX [Concomitant]
     Dosage: 40 MG, BID
     Route: 048
     Dates: start: 20050503
  46. HEPARIN [Concomitant]
     Dosage: 30000 U, UNK
     Route: 042
     Dates: start: 20050511
  47. XANAX [Concomitant]
     Dosage: 0.25 MG EVERY DAY TO THREE TIMES DAILY AS NEEDED
     Route: 048
     Dates: start: 20050509
  48. IOPAMIDOL [Concomitant]
     Indication: CATHETERISATION CARDIAC
     Dosage: 5 CML
     Dates: start: 20050506

REACTIONS (15)
  - MULTI-ORGAN FAILURE [None]
  - EMOTIONAL DISTRESS [None]
  - ANXIETY [None]
  - RIGHT VENTRICULAR FAILURE [None]
  - PAIN [None]
  - RENAL IMPAIRMENT [None]
  - STRESS [None]
  - ANHEDONIA [None]
  - CEREBROVASCULAR ACCIDENT [None]
  - RENAL INJURY [None]
  - RENAL FAILURE [None]
  - UNEVALUABLE EVENT [None]
  - PULMONARY HYPERTENSION [None]
  - FEAR [None]
  - INJURY [None]
